FAERS Safety Report 19447566 (Version 1)
Quarter: 2021Q2

REPORT INFORMATION
  Report Type: Spontaneous
  Country: US (occurrence: US)
  Receive Date: 20210621
  Receipt Date: 20210621
  Transmission Date: 20210717
  Serious: Yes (Death)
  Sender: FDA-Public Use
  Company Number: None

PATIENT
  Sex: Male

DRUGS (1)
  1. DOFETILIDE 125MCG CAP [Suspect]
     Active Substance: DOFETILIDE
     Indication: PULMONARY ARTERIAL HYPERTENSION
     Dosage: OTHER DOSE:1 CAP; BID PO?
     Route: 048
     Dates: start: 20200820

REACTIONS (1)
  - Death [None]
